FAERS Safety Report 16971672 (Version 1)
Quarter: 2019Q4

REPORT INFORMATION
  Report Type: Spontaneous
  Country: US (occurrence: US)
  Receive Date: 20191029
  Receipt Date: 20191029
  Transmission Date: 20200122
  Serious: No
  Sender: FDA-Public Use
  Company Number: US-PERRIGO-18US013757

PATIENT
  Age: 81 Year
  Sex: Female
  Weight: 70.75 kg

DRUGS (2)
  1. MESALAZINE [Suspect]
     Active Substance: MESALAMINE
     Indication: COLITIS
     Dosage: UNKNOWN, QHS
     Route: 054
     Dates: start: 201808, end: 201808
  2. MESALAZINE [Suspect]
     Active Substance: MESALAMINE
     Dosage: UNKNOWN, QHS
     Route: 054
     Dates: start: 20181109

REACTIONS (2)
  - Administration site irritation [Not Recovered/Not Resolved]
  - Underdose [Unknown]

NARRATIVE: CASE EVENT DATE: 201808
